FAERS Safety Report 17289354 (Version 1)
Quarter: 2020Q1

REPORT INFORMATION
  Report Type: Spontaneous
  Country: US (occurrence: US)
  Receive Date: 20200120
  Receipt Date: 20200120
  Transmission Date: 20200409
  Serious: Yes (Hospitalization)
  Sender: FDA-Public Use
  Company Number: US-MYLANLABS-2020M1005719

PATIENT
  Age: 62 Year
  Sex: Female

DRUGS (1)
  1. ATORVASTATIN [Suspect]
     Active Substance: ATORVASTATIN
     Indication: HYPERLIPIDAEMIA
     Dosage: RECEIVING FOR THE PAST FIVE YEARS..
     Route: 065

REACTIONS (4)
  - Dysphagia [Recovering/Resolving]
  - Fall [Unknown]
  - Acute respiratory failure [Recovered/Resolved]
  - Immune-mediated myositis [Recovering/Resolving]
